FAERS Safety Report 7741771 (Version 4)
Quarter: 2014Q2

REPORT INFORMATION
  Report Type: Report from Study
  Country: IT (occurrence: IT)
  Receive Date: 20101228
  Receipt Date: 20140618
  Transmission Date: 20141212
  Serious: Yes (Death, Other)
  Sender: FDA-Public Use
  Company Number: IT-CELGENEUS-083-21880-10122365

PATIENT
  Sex: 0

DRUGS (10)
  1. REVLIMID [Suspect]
     Indication: CHRONIC LYMPHOCYTIC LEUKAEMIA
     Dosage: 2.5 MILLIGRAM
     Route: 048
  2. REVLIMID [Suspect]
     Dosage: 5 MILLIGRAM
     Route: 048
  3. REVLIMID [Suspect]
     Dosage: 10 MILLIGRAM
     Route: 048
  4. REVLIMID [Suspect]
     Dosage: 15 MILLIGRAM
     Route: 048
  5. FLUDARABINE [Suspect]
     Indication: CHRONIC LYMPHOCYTIC LEUKAEMIA
     Dosage: 30 MILLIGRAM/SQ. METER
     Route: 041
  6. CYCLOPHOSPHAMIDE [Suspect]
     Indication: CHRONIC LYMPHOCYTIC LEUKAEMIA
     Dosage: 250 MILLIGRAM/SQ. METER
     Route: 065
  7. GRANULOCYTE COLONY-STIMULATING FACTOR NOS [Concomitant]
     Indication: PROPHYLAXIS
     Route: 065
  8. ENOXAPARIN [Concomitant]
     Indication: THROMBOSIS PROPHYLAXIS
     Dosage: 4000 UNITS
     Route: 058
  9. ALLOPURINOL [Concomitant]
     Indication: PROPHYLAXIS
     Dosage: 300 MILLIGRAM
     Route: 065
  10. HEPARIN [Concomitant]
     Indication: PRODUCT USED FOR UNKNOWN INDICATION
     Route: 065

REACTIONS (19)
  - Chronic lymphocytic leukaemia [Fatal]
  - Richter^s syndrome [Fatal]
  - Liver disorder [Unknown]
  - Tumour flare [Unknown]
  - Pneumonia [Unknown]
  - Atrial fibrillation [Unknown]
  - Neutropenia [Unknown]
  - Granulocytopenia [Unknown]
  - Tumour lysis syndrome [Unknown]
  - Thrombocytopenia [Unknown]
  - Anaemia [Unknown]
  - Hypertransaminasaemia [Unknown]
  - Fatigue [Unknown]
  - Pneumonitis [Recovered/Resolved]
  - Constipation [Unknown]
  - Treatment failure [Unknown]
  - Rash [Unknown]
  - Muscle spasms [Unknown]
  - Pyrexia [Unknown]
